FAERS Safety Report 16953254 (Version 3)
Quarter: 2019Q4

REPORT INFORMATION
  Report Type: Spontaneous
  Country: JP (occurrence: JP)
  Receive Date: 20191023
  Receipt Date: 20191216
  Transmission Date: 20200122
  Serious: Yes (Death, Other)
  Sender: FDA-Public Use
  Company Number: JP-PFIZER INC-2019458873

PATIENT
  Age: 8 Decade
  Sex: Male

DRUGS (1)
  1. DOCETAXEL 120MG/12ML HOSPIRA [Suspect]
     Active Substance: DOCETAXEL
     Indication: PROSTATE CANCER
     Dosage: UNK
     Dates: start: 201702, end: 201703

REACTIONS (2)
  - Death [Fatal]
  - Interstitial lung disease [Unknown]
